FAERS Safety Report 16263436 (Version 2)
Quarter: 2019Q4

REPORT INFORMATION
  Report Type: Spontaneous
  Country: US (occurrence: US)
  Receive Date: 20190502
  Receipt Date: 20191114
  Transmission Date: 20200122
  Serious: Yes (Other)
  Sender: FDA-Public Use
  Company Number: US-BAYER-2019-087914

PATIENT
  Age: 33 Year
  Sex: Female
  Weight: 68.49 kg

DRUGS (2)
  1. MIRENA [Suspect]
     Active Substance: LEVONORGESTREL
     Indication: CONTRACEPTION
     Dosage: 20 MCG/24HR, CONT
     Route: 015
     Dates: start: 20160518, end: 2019
  2. MIRENA [Suspect]
     Active Substance: LEVONORGESTREL
     Indication: CONTRACEPTION

REACTIONS (6)
  - Drug ineffective [None]
  - Abdominal pain lower [Not Recovered/Not Resolved]
  - Uterine haemorrhage [None]
  - Abortion missed [None]
  - Pregnancy with contraceptive device [None]
  - Vaginal haemorrhage [None]

NARRATIVE: CASE EVENT DATE: 20190430
